FAERS Safety Report 15247090 (Version 1)
Quarter: 2018Q3

REPORT INFORMATION
  Report Type: Spontaneous
  Country: US (occurrence: US)
  Receive Date: 20180807
  Receipt Date: 20180807
  Transmission Date: 20181010
  Serious: Yes (Hospitalization)
  Sender: FDA-Public Use
  Company Number: US-ABBVIE-17P-163-2095037-00

PATIENT
  Sex: Female

DRUGS (2)
  1. DEPAKOTE [Suspect]
     Active Substance: DIVALPROEX SODIUM
     Indication: PRODUCT USED FOR UNKNOWN INDICATION
     Route: 065
  2. KEPPRA [Suspect]
     Active Substance: LEVETIRACETAM
     Indication: PRODUCT USED FOR UNKNOWN INDICATION
     Route: 065

REACTIONS (4)
  - Feeling abnormal [Unknown]
  - Headache [Unknown]
  - Drug withdrawal syndrome [Unknown]
  - Fatigue [Unknown]
